FAERS Safety Report 23236978 (Version 2)
Quarter: 2023Q4

REPORT INFORMATION
  Report Type: Other
  Country: PK (occurrence: None)
  Receive Date: 20231128
  Receipt Date: 20231205
  Transmission Date: 20240109
  Serious: Yes (Death)
  Sender: FDA-Public Use
  Company Number: PK-ROCHE-3465459

PATIENT
  Age: 49 Year
  Sex: Male

DRUGS (2)
  1. AVASTIN [Suspect]
     Active Substance: BEVACIZUMAB
     Indication: Hepatocellular carcinoma
     Route: 042
     Dates: start: 20230714
  2. TECENTRIQ [Suspect]
     Active Substance: ATEZOLIZUMAB
     Indication: Hepatocellular carcinoma
     Route: 041
     Dates: start: 20230714

REACTIONS (2)
  - Ascites [Fatal]
  - Hyperbilirubinaemia [Fatal]

NARRATIVE: CASE EVENT DATE: 20231107
